FAERS Safety Report 19452123 (Version 1)
Quarter: 2021Q2

REPORT INFORMATION
  Report Type: Spontaneous
  Country: GB (occurrence: GB)
  Receive Date: 20210623
  Receipt Date: 20210623
  Transmission Date: 20210717
  Serious: Yes (Other)
  Sender: FDA-Public Use
  Company Number: GB-TEVA-2021-GB-1924318

PATIENT
  Age: 88 Year
  Sex: Male
  Weight: 80 kg

DRUGS (8)
  1. CETRABEN EMOLLIENT CREAM [Concomitant]
     Dosage: APPLY TO THE AFFECTED AREAS OF SKIN 4 TO 6 TIME.
     Dates: start: 20201022
  2. LANSOPRAZOLE. [Concomitant]
     Active Substance: LANSOPRAZOLE
     Dosage: 1 DOSAGE FORMS DAILY;
     Dates: start: 20201022
  3. EDOXABAN [Concomitant]
     Active Substance: EDOXABAN TOSYLATE
     Dosage: 1 DOSAGE FORMS DAILY;
     Dates: start: 20201022
  4. DONEPEZIL HYDROCHLORIDE. [Concomitant]
     Active Substance: DONEPEZIL HYDROCHLORIDE
     Dosage: 1 DOSAGE FORMS DAILY;
     Dates: start: 20201022
  5. TRIMETHOPRIM. [Suspect]
     Active Substance: TRIMETHOPRIM
     Dosage: 400 MILLIGRAM DAILY; FOR 7 DAYS
     Dates: start: 20210528
  6. FINASTERIDE. [Concomitant]
     Active Substance: FINASTERIDE
     Dosage: 1 DOSAGE FORMS DAILY;
     Dates: start: 20201022
  7. PIVMECILLINAM [Concomitant]
     Active Substance: AMDINOCILLIN PIVOXIL
     Dosage: TAKE TWO FOR FIRST DOSE THEN ONE THREE TIMES A .
     Dates: start: 20210517, end: 20210520
  8. QV CREAM [Concomitant]
     Dosage: USE AS DIRECTED
     Dates: start: 20210419, end: 20210519

REACTIONS (2)
  - Swelling face [Recovered/Resolved]
  - Eye swelling [Recovered/Resolved]

NARRATIVE: CASE EVENT DATE: 20210529
